FAERS Safety Report 4601498-6 (Version None)
Quarter: 2005Q1

REPORT INFORMATION
  Report Type: 
  Country: None (occurrence: None)
  Receive Date: 20050308
  Receipt Date: 20050301
  Transmission Date: 20050727
  Serious: Yes (Disabling)
  Sender: FDA-Public Use
  Company Number: JP-MERCK-0503USA00215

PATIENT
  Age: 66 Year
  Sex: Female

DRUGS (5)
  1. DECADRON [Suspect]
     Route: 048
     Dates: start: 20031106
  2. EPIRUBICIN [Suspect]
     Route: 051
     Dates: start: 20031106
  3. ENDOXAN [Suspect]
     Route: 051
     Dates: start: 20031106
  4. PEPCID [Concomitant]
     Route: 065
     Dates: start: 20031106
  5. SEROTONE [Concomitant]
     Route: 065
     Dates: start: 20031106

REACTIONS (1)
  - CEREBRAL INFARCTION [None]
